FAERS Safety Report 20335658 (Version 2)
Quarter: 2025Q1

REPORT INFORMATION
  Report Type: Spontaneous
  Country: US (occurrence: US)
  Receive Date: 20220114
  Receipt Date: 20250102
  Transmission Date: 20250409
  Serious: Yes (Death, Hospitalization, Other)
  Sender: AMGEN
  Company Number: US-AMGEN-USASP2022002151

PATIENT

DRUGS (5)
  1. RITUXIMAB [Suspect]
     Active Substance: RITUXIMAB
     Indication: Acquired haemophilia
     Route: 065
  2. CYCLOPHOSPHAMIDE [Concomitant]
     Active Substance: CYCLOPHOSPHAMIDE
  3. MYCOPHENOLATE MOFETIL [Concomitant]
     Active Substance: MYCOPHENOLATE MOFETIL
  4. DARATUMUMAB [Concomitant]
     Active Substance: DARATUMUMAB
  5. EMICIZUMAB [Concomitant]
     Active Substance: EMICIZUMAB

REACTIONS (32)
  - Death [Fatal]
  - Malignant neoplasm progression [Fatal]
  - COVID-19 [Fatal]
  - Cardiac failure [Fatal]
  - Unevaluable event [Unknown]
  - Haemarthrosis [Unknown]
  - Retroperitoneal haemorrhage [Unknown]
  - Gastrointestinal haemorrhage [Unknown]
  - Subdural haematoma [Unknown]
  - Embolism venous [Unknown]
  - Deep vein thrombosis [Unknown]
  - Transient ischaemic attack [Unknown]
  - Syncope [Unknown]
  - Acquired haemophilia [Unknown]
  - Myocardial ischaemia [Unknown]
  - Cerebrovascular accident [Unknown]
  - Acute myocardial infarction [Unknown]
  - Therapy non-responder [Unknown]
  - Infusion related reaction [Unknown]
  - Therapy partial responder [Unknown]
  - Ecchymosis [Recovered/Resolved]
  - Off label use [Unknown]
  - Haematuria [Unknown]
  - Soft tissue haemorrhage [Unknown]
  - Venous thrombosis [Unknown]
  - Arterial thrombosis [Unknown]
  - Hypersensitivity [Unknown]
  - Weight decreased [Unknown]
  - Arthralgia [Unknown]
  - Dyspnoea [Unknown]
  - Pyrexia [Unknown]
  - Procedural haemorrhage [Unknown]
